FAERS Safety Report 13510803 (Version 1)
Quarter: 2017Q2

REPORT INFORMATION
  Report Type: Spontaneous
  Country: US (occurrence: US)
  Receive Date: 20170503
  Receipt Date: 20170503
  Transmission Date: 20170830
  Serious: Yes (Other)
  Sender: FDA-Public Use
  Company Number: None

PATIENT
  Age: 22 Year
  Sex: Female
  Weight: 73.48 kg

DRUGS (1)
  1. PARAGARD T 380A [Suspect]
     Active Substance: COPPER
     Indication: CONTRACEPTION
     Dosage: 1 DF ONCE INTRA-UTERINE
     Route: 015
     Dates: start: 20170410, end: 20170411

REACTIONS (3)
  - Urticaria [None]
  - Pruritus [None]
  - Uterine spasm [None]

NARRATIVE: CASE EVENT DATE: 20170410
